FAERS Safety Report 9198731 (Version 1)
Quarter: 2013Q1

REPORT INFORMATION
  Report Type: Spontaneous
  Country: US (occurrence: None)
  Receive Date: 20120709
  Receipt Date: 20120709
  Transmission Date: 20140127
  Serious: Yes (Hospitalization)
  Sender: FDA-Public Use
  Company Number: PHEH2012US006335

PATIENT
  Age: 64 Year
  Sex: Male

DRUGS (1)
  1. GLEEVEC (IMATINIB) UNKNOWN [Suspect]
     Indication: CHRONIC MYELOID LEUKAEMIA
     Route: 048
     Dates: start: 20120131

REACTIONS (5)
  - Myocardial infarction [None]
  - Pneumonia [None]
  - Pyrexia [None]
  - Oxygen saturation abnormal [None]
  - Blood pressure abnormal [None]
